FAERS Safety Report 24351146 (Version 1)
Quarter: 2024Q3

REPORT INFORMATION
  Report Type: Report from Study
  Country: AT (occurrence: AT)
  Receive Date: 20240923
  Receipt Date: 20240923
  Transmission Date: 20241017
  Serious: No
  Sender: ROCHE
  Company Number: AT-ROCHE-2102044

PATIENT
  Age: 75 Year
  Sex: Female
  Weight: 105.0 kg

DRUGS (47)
  1. TRASTUZUMAB [Suspect]
     Active Substance: TRASTUZUMAB
     Indication: HER2 positive breast cancer
     Dosage: MOST RECENT DOSE PRIOR TO THE EVENT: 03/JAN/2018
     Route: 042
     Dates: start: 20171113, end: 20171113
  2. TRASTUZUMAB [Suspect]
     Active Substance: TRASTUZUMAB
     Route: 042
     Dates: start: 20180103, end: 20180329
  3. TRASTUZUMAB [Suspect]
     Active Substance: TRASTUZUMAB
     Route: 042
     Dates: start: 20171205, end: 20171205
  4. PERJETA [Suspect]
     Active Substance: PERTUZUMAB
     Indication: HER2 positive breast cancer
     Dosage: MOST RECENT DOSE PRIOR TO THE EVENT: 03/JAN/2018
     Route: 042
     Dates: start: 20171113, end: 20171113
  5. PERJETA [Suspect]
     Active Substance: PERTUZUMAB
     Route: 042
     Dates: start: 20180103, end: 20180329
  6. DOCETAXEL [Suspect]
     Active Substance: DOCETAXEL\DOCETAXEL ANHYDROUS
     Indication: HER2 positive breast cancer
     Dosage: MOST RECENT DOSE PRIOR TO THE EVENT:05/DEC/2017
     Route: 042
     Dates: start: 20171113, end: 20171205
  7. PACLITAXEL [Suspect]
     Active Substance: PACLITAXEL
     Indication: HER2 positive breast cancer
     Dosage: MOST RECENT DOSE  PRIOR TO EVENT 07/MAR/2018
     Route: 042
     Dates: start: 20180103
  8. VOLTAREN [Concomitant]
     Active Substance: DICLOFENAC SODIUM
     Dates: start: 20171215, end: 20180515
  9. ZOFRAN [Concomitant]
     Active Substance: ONDANSETRON HYDROCHLORIDE
     Dates: start: 20171113, end: 20180307
  10. ZOFRAN [Concomitant]
     Active Substance: ONDANSETRON HYDROCHLORIDE
     Dates: start: 20171115, end: 20180519
  11. MAGNESIUM CARBONATE\MAGNESIUM OXIDE [Concomitant]
     Active Substance: MAGNESIUM CARBONATE\MAGNESIUM OXIDE
     Dates: start: 20171115, end: 20180425
  12. GLANDOMED [Concomitant]
     Dates: start: 20171115, end: 20180519
  13. FUROSEMIDE\SPIRONOLACTONE [Concomitant]
     Active Substance: FUROSEMIDE\SPIRONOLACTONE
     Dates: start: 20180101, end: 20180329
  14. LIPEGFILGRASTIM [Concomitant]
     Active Substance: LIPEGFILGRASTIM
     Dates: start: 20171113, end: 20180329
  15. DEXAMETHASONE [Concomitant]
     Active Substance: DEXAMETHASONE
     Dates: start: 20171113, end: 20180329
  16. DEXAMETHASONE [Concomitant]
     Active Substance: DEXAMETHASONE
     Dates: start: 20171113, end: 20180329
  17. DIPHENHYDRAMINE HYDROCHLORIDE [Concomitant]
     Active Substance: DIPHENHYDRAMINE HYDROCHLORIDE
     Dates: start: 20171113, end: 20180329
  18. DRONABINOL [Concomitant]
     Active Substance: DRONABINOL
     Dates: start: 20180321, end: 20180329
  19. HYDROMORPHONE HYDROCHLORIDE [Concomitant]
     Active Substance: HYDROMORPHONE HYDROCHLORIDE
     Dates: start: 20180307, end: 20180415
  20. HYDROMORPHONE HYDROCHLORIDE [Concomitant]
     Active Substance: HYDROMORPHONE HYDROCHLORIDE
     Dates: start: 20171115
  21. LASIX [Concomitant]
     Active Substance: FUROSEMIDE
     Dates: start: 20180329, end: 20180519
  22. ERYPO [Concomitant]
     Dates: start: 20180329, end: 20180519
  23. PANTOPRAZOLE SODIUM [Concomitant]
     Active Substance: PANTOPRAZOLE SODIUM
     Dates: start: 20171113, end: 20180509
  24. ALOXI [Concomitant]
     Active Substance: PALONOSETRON HYDROCHLORIDE
     Dosage: ONGOING = NOT CHECKED
     Dates: start: 20180103, end: 20180307
  25. BUPRENORPHINE [Concomitant]
     Active Substance: BUPRENORPHINE
     Dosage: ONGOING = NOT CHECKED
     Dates: start: 20180411, end: 20180519
  26. BUPRENORPHINE [Concomitant]
     Active Substance: BUPRENORPHINE
     Dates: start: 20171227
  27. POLYETHYLENE GLYCOL 3350\POTASSIUM CHLORIDE\SODIUM BICARBONATE\SODIUM [Concomitant]
     Active Substance: POLYETHYLENE GLYCOL 3350\POTASSIUM CHLORIDE\SODIUM BICARBONATE\SODIUM CHLORIDE
     Dosage: ONGOING = NOT CHECKED
     Dates: start: 20180409, end: 20180415
  28. HALDOL [Concomitant]
     Active Substance: HALOPERIDOL
     Dosage: ONGOING = NOT CHECKED
     Dates: start: 20180409, end: 20180519
  29. LYRICA [Concomitant]
     Active Substance: PREGABALIN
     Dosage: ONGOING = NOT CHECKED
     Dates: start: 20180409, end: 20180425
  30. BUPRENORPHINE HYDROCHLORIDE [Concomitant]
     Active Substance: BUPRENORPHINE HYDROCHLORIDE
     Dosage: ONGOING = NOT CHECKED
     Dates: start: 20180409, end: 20180415
  31. IRON ISOMALTOSIDE 1000 [Concomitant]
     Active Substance: IRON ISOMALTOSIDE 1000
     Indication: Anaemia
     Dosage: ONGOING = NOT CHECKED
     Dates: start: 20180410, end: 20180410
  32. BISOPROLOL FUMARATE [Concomitant]
     Active Substance: BISOPROLOL FUMARATE
  33. MORPHINE [Concomitant]
     Active Substance: MORPHINE
     Indication: Nocturnal dyspnoea
     Dosage: ONGOING = NOT CHECKED
     Dates: start: 20180409, end: 20180409
  34. LEVOTHYROXINE SODIUM [Concomitant]
     Active Substance: LEVOTHYROXINE SODIUM
  35. DICLOFENAC SODIUM\ORPHENADRINE CITRATE [Concomitant]
     Active Substance: DICLOFENAC SODIUM\ORPHENADRINE CITRATE
     Dosage: ONGOING = NOT CHECKED
     Dates: start: 20180409, end: 20180417
  36. LOVENOX [Concomitant]
     Active Substance: ENOXAPARIN SODIUM
     Dosage: ONGOING = NOT CHECKED
     Dates: start: 20180409, end: 20180419
  37. ASCORBIC ACID\CALCIUM PHOSPHATE\CHOLECALCIFEROL\CITRIC ACID MONOHYDRAT [Concomitant]
     Active Substance: ASCORBIC ACID\CALCIUM PHOSPHATE\CHOLECALCIFEROL\CITRIC ACID MONOHYDRATE
     Dates: start: 20171115
  38. NOVALGIN (AUSTRIA) [Concomitant]
     Dates: start: 20171215
  39. PROPOFOL [Concomitant]
     Active Substance: PROPOFOL
  40. DORMICUM [Concomitant]
  41. FENTANYL [Concomitant]
     Active Substance: FENTANYL\FENTANYL CITRATE
  42. MORPHINE [Concomitant]
     Active Substance: MORPHINE
  43. FRAGMIN [Concomitant]
     Active Substance: DALTEPARIN SODIUM
  44. METRONIDAZOLE [Concomitant]
     Active Substance: METRONIDAZOLE
  45. FENTANYL CITRATE [Concomitant]
     Active Substance: FENTANYL CITRATE
  46. CEFUROXIME [Concomitant]
     Active Substance: CEFUROXIME
  47. XGEVA [Concomitant]
     Active Substance: DENOSUMAB
     Indication: Breast cancer
     Route: 058
     Dates: start: 20171109

REACTIONS (1)
  - Anaemia [Recovering/Resolving]

NARRATIVE: CASE EVENT DATE: 20180315
